FAERS Safety Report 19057390 (Version 1)
Quarter: 2021Q1

REPORT INFORMATION
  Report Type: Spontaneous
  Country: US (occurrence: US)
  Receive Date: 20210325
  Receipt Date: 20210325
  Transmission Date: 20210420
  Serious: No
  Sender: FDA-Public Use
  Company Number: US-JNJFOC-20210328651

PATIENT
  Age: 71 Year
  Sex: Female

DRUGS (1)
  1. MENS ROGAINE EXTRA STRENGTH [Suspect]
     Active Substance: MINOXIDIL
     Indication: ALOPECIA
     Dosage: DOSE: A TABLESPOON
     Route: 061
     Dates: start: 20210130

REACTIONS (5)
  - Alopecia [Not Recovered/Not Resolved]
  - Intentional product misuse [Unknown]
  - Product physical consistency issue [Unknown]
  - Product use issue [Unknown]
  - Hair texture abnormal [Recovered/Resolved]

NARRATIVE: CASE EVENT DATE: 20210130
